FAERS Safety Report 8927405 (Version 1)
Quarter: 2012Q4

REPORT INFORMATION
  Report Type: 
  Country: FR (occurrence: FR)
  Receive Date: 20121127
  Receipt Date: 20121127
  Transmission Date: 20130627
  Serious: Yes (Life-Threatening)
  Sender: FDA-Public Use
  Company Number: FR-ASTRAZENECA-2012SE88618

PATIENT
  Age: 53 Year
  Sex: Male

DRUGS (7)
  1. DIPRIVAN [Suspect]
     Indication: ANAESTHESIA
     Route: 042
     Dates: start: 20121016, end: 20121016
  2. CEFAMANDOLE [Suspect]
     Indication: INFECTION PROPHYLAXIS
     Route: 042
     Dates: start: 20121016, end: 20121016
  3. SUFENTANIL MERCK [Suspect]
     Indication: ANAESTHESIA
     Dosage: FIRST INJECTION OF 20 MG AND SECOND INJECTION OF 10 MG
     Route: 042
     Dates: start: 20121016, end: 20121016
  4. ATRACURIUM HOSPIRA [Concomitant]
     Indication: ANAESTHESIA
     Route: 042
     Dates: start: 20121016, end: 20121016
  5. LIPANTHYL [Concomitant]
     Indication: HYPERCHOLESTEROLAEMIA
     Route: 048
  6. NAPROXEN [Concomitant]
     Route: 048
  7. CETIRIZIN [Concomitant]
     Indication: PRURITUS
     Route: 048

REACTIONS (1)
  - Anaphylactic shock [Recovered/Resolved]
